FAERS Safety Report 20583792 (Version 6)
Quarter: 2022Q2

REPORT INFORMATION
  Report Type: Spontaneous
  Country: US (occurrence: US)
  Receive Date: 20220311
  Receipt Date: 20220414
  Transmission Date: 20220721
  Serious: Yes (Other)
  Sender: FDA-Public Use
  Company Number: US-UNITED THERAPEUTICS-UNT-2022-004619

PATIENT
  Age: 49 Year
  Sex: Female

DRUGS (17)
  1. TYVASO [Suspect]
     Active Substance: TREPROSTINIL
     Indication: Pulmonary arterial hypertension
     Dosage: UNK
     Dates: start: 20220224
  2. TYVASO [Suspect]
     Active Substance: TREPROSTINIL
     Dosage: 18 ?G, QID
     Dates: start: 202202
  3. TYVASO [Suspect]
     Active Substance: TREPROSTINIL
     Dosage: 36 ?G, QID
  4. TYVASO [Suspect]
     Active Substance: TREPROSTINIL
     Dosage: 72 ?G, QID
  5. TYVASO [Suspect]
     Active Substance: TREPROSTINIL
     Dosage: 84 ?G, QID
  6. TYVASO [Suspect]
     Active Substance: TREPROSTINIL
     Dosage: 120 ?G, QID
  7. TYVASO [Suspect]
     Active Substance: TREPROSTINIL
     Dosage: 108 ?G, QID
  8. ADCIRCA [Suspect]
     Active Substance: TADALAFIL
     Indication: Pulmonary arterial hypertension
     Dosage: 40 MG, QD
     Route: 048
     Dates: start: 20220211
  9. ADCIRCA [Suspect]
     Active Substance: TADALAFIL
     Dosage: UNK
     Route: 048
     Dates: start: 20220212
  10. ADCIRCA [Suspect]
     Active Substance: TADALAFIL
     Dosage: 40 MG, QD
     Route: 048
     Dates: start: 202202, end: 202202
  11. ADCIRCA [Suspect]
     Active Substance: TADALAFIL
     Dosage: 40 MG (IN MORNING) AND 20 MG (IN EVENING), BID
     Route: 048
     Dates: start: 202202
  12. DIGOXIN [Suspect]
     Active Substance: DIGOXIN
     Indication: Product used for unknown indication
     Dosage: UNK
     Route: 065
     Dates: end: 202202
  13. DIGOXIN [Suspect]
     Active Substance: DIGOXIN
     Dosage: UNK (INCREASED DOSE)
     Route: 065
     Dates: start: 202202
  14. AMBRISENTAN [Concomitant]
     Active Substance: AMBRISENTAN
     Indication: Pulmonary arterial hypertension
     Dosage: 10 MG, QD
     Route: 065
     Dates: start: 201702
  15. AMBRISENTAN [Concomitant]
     Active Substance: AMBRISENTAN
     Dosage: 10 MG, QD
     Route: 065
     Dates: start: 20191022
  16. VELETRI [Concomitant]
     Active Substance: EPOPROSTENOL
     Indication: Pulmonary arterial hypertension
     Dosage: 0.010 ?G/KG
     Route: 041
     Dates: start: 20210630
  17. VELETRI [Concomitant]
     Active Substance: EPOPROSTENOL
     Dosage: 0.010 ?G/KG, Q1MIN
     Route: 041
     Dates: start: 20210701

REACTIONS (24)
  - Pulmonary oedema [Unknown]
  - Device dislocation [Unknown]
  - Chest discomfort [Unknown]
  - Paraesthesia [Unknown]
  - Nausea [Recovered/Resolved]
  - Chills [Unknown]
  - Dizziness [Unknown]
  - Cough [Unknown]
  - Pruritus [Unknown]
  - Heart rate increased [Unknown]
  - Memory impairment [Unknown]
  - Anxiety [Unknown]
  - Stress [Unknown]
  - Disturbance in attention [Unknown]
  - Headache [Unknown]
  - Muscle spasms [Unknown]
  - Dermatitis contact [Unknown]
  - Palpitations [Unknown]
  - Pain in extremity [Unknown]
  - Peripheral swelling [Unknown]
  - Throat irritation [Unknown]
  - Feeling abnormal [Unknown]
  - Feeling hot [Unknown]
  - Off label use [Not Recovered/Not Resolved]

NARRATIVE: CASE EVENT DATE: 20220201
